FAERS Safety Report 7800276-4 (Version None)
Quarter: 2011Q4

REPORT INFORMATION
  Report Type: 
  Country: None (occurrence: None)
  Receive Date: 20111006
  Receipt Date: 20110926
  Transmission Date: 20120403
  Serious: Yes (Disabling)
  Sender: FDA-Public Use
  Company Number: FR-GLAXOSMITHKLINE-B0731038A

PATIENT
  Sex: Female
  Weight: 62 kg

DRUGS (3)
  1. TED STOCKINGS [Concomitant]
  2. ARIXTRA [Suspect]
     Indication: THROMBOSIS PROPHYLAXIS
     Dosage: 2.5MG PER DAY
     Route: 058
     Dates: start: 20110311, end: 20110411
  3. ARIXTRA [Suspect]
     Indication: DEEP VEIN THROMBOSIS
     Dosage: 5MG PER DAY
     Route: 058
     Dates: start: 20110101, end: 20110301

REACTIONS (10)
  - PARAESTHESIA [None]
  - NEUROPATHY PERIPHERAL [None]
  - OEDEMA PERIPHERAL [None]
  - MULTIFOCAL MOTOR NEUROPATHY [None]
  - OFF LABEL USE [None]
  - PETECHIAE [None]
  - UNDERDOSE [None]
  - PAIN [None]
  - HYPOAESTHESIA [None]
  - INCORRECT DRUG ADMINISTRATION DURATION [None]
